FAERS Safety Report 12262134 (Version 2)
Quarter: 2016Q2

REPORT INFORMATION
  Report Type: Spontaneous
  Country: US (occurrence: US)
  Receive Date: 20160413
  Receipt Date: 20160419
  Transmission Date: 20160815
  Serious: Yes (Hospitalization)
  Sender: FDA-Public Use
  Company Number: US-GLAXOSMITHKLINE-US2016048801

PATIENT
  Age: 74 Year
  Sex: Female

DRUGS (17)
  1. VENTOLIN HFA [Suspect]
     Active Substance: ALBUTEROL SULFATE
     Indication: CHRONIC OBSTRUCTIVE PULMONARY DISEASE
     Dosage: 2 PUFF(S), TID
     Route: 055
     Dates: start: 2006
  2. ALBUTEROL NEBULIZER [Concomitant]
     Active Substance: ALBUTEROL
  3. DEMADEX [Concomitant]
     Active Substance: TORSEMIDE
  4. HYDROCODONE [Concomitant]
     Active Substance: HYDROCODONE
  5. XANAX [Concomitant]
     Active Substance: ALPRAZOLAM
  6. GLIPIZIDE. [Concomitant]
     Active Substance: GLIPIZIDE
  7. PREVACID [Concomitant]
     Active Substance: LANSOPRAZOLE
  8. ANTIVERT [Concomitant]
     Active Substance: MECLIZINE HYDROCHLORIDE
  9. FOSAMAX [Concomitant]
     Active Substance: ALENDRONATE SODIUM
  10. TUDORZA PRESSAIR [Concomitant]
     Active Substance: ACLIDINIUM BROMIDE
  11. LYRICA [Concomitant]
     Active Substance: PREGABALIN
  12. ACTOS [Concomitant]
     Active Substance: PIOGLITAZONE HYDROCHLORIDE
  13. FLEXERIL [Concomitant]
     Active Substance: CYCLOBENZAPRINE HYDROCHLORIDE
  14. SYMBICORT [Concomitant]
     Active Substance: BUDESONIDE\FORMOTEROL FUMARATE DIHYDRATE
  15. COLACE [Concomitant]
     Active Substance: DOCUSATE SODIUM
  16. DALIRESP [Concomitant]
     Active Substance: ROFLUMILAST
  17. MIRAPEX [Concomitant]
     Active Substance: PRAMIPEXOLE DIHYDROCHLORIDE

REACTIONS (1)
  - Chronic obstructive pulmonary disease [Recovering/Resolving]

NARRATIVE: CASE EVENT DATE: 20160408
